FAERS Safety Report 5328368-2 (Version None)
Quarter: 2007Q2

REPORT INFORMATION
  Report Type: 
  Country: None (occurrence: None)
  Receive Date: 20070515
  Receipt Date: 20070515
  Transmission Date: 20071010
  Serious: Yes (Hospitalization)
  Sender: FDA-Public Use
  Company Number: None

PATIENT
  Sex: Male

DRUGS (2)
  1. IFOSFAMIDE [Suspect]
     Indication: CHEMOTHERAPY
  2. IFOSFAMIDE [Suspect]
     Indication: NON-HODGKIN'S LYMPHOMA

REACTIONS (13)
  - ACIDOSIS [None]
  - BLOOD MAGNESIUM DECREASED [None]
  - BLOOD PHOSPHORUS DECREASED [None]
  - CONFUSIONAL STATE [None]
  - HALLUCINATION [None]
  - HYPOKALAEMIA [None]
  - LETHARGY [None]
  - ORAL INTAKE REDUCED [None]
  - PANCYTOPENIA [None]
  - RENAL IMPAIRMENT [None]
  - RENAL TUBULAR ACIDOSIS [None]
  - SOMNOLENCE [None]
  - URINARY TRACT INFECTION [None]
